FAERS Safety Report 19753049 (Version 1)
Quarter: 2021Q3

REPORT INFORMATION
  Report Type: Spontaneous
  Country: US (occurrence: US)
  Receive Date: 20210824
  Receipt Date: 20210824
  Transmission Date: 20211014
  Serious: No
  Sender: FDA-Public Use
  Company Number: None

PATIENT
  Age: 45 Year
  Sex: Male

DRUGS (2)
  1. AMBRISENTAN [Concomitant]
     Active Substance: AMBRISENTAN
  2. SILDENAFIL TAB 20MG [Suspect]
     Active Substance: SILDENAFIL
     Route: 048
     Dates: start: 201908

REACTIONS (1)
  - Dyspnoea [None]

NARRATIVE: CASE EVENT DATE: 20210818
